FAERS Safety Report 18174095 (Version 1)
Quarter: 2020Q3

REPORT INFORMATION
  Report Type: Spontaneous
  Country: US (occurrence: US)
  Receive Date: 20200819
  Receipt Date: 20200819
  Transmission Date: 20201103
  Serious: No
  Sender: FDA-Public Use
  Company Number: None

PATIENT
  Age: 60 Year
  Sex: Male
  Weight: 189 kg

DRUGS (12)
  1. METFORMIN [Concomitant]
     Active Substance: METFORMIN HYDROCHLORIDE
  2. DICLOFENAC 1% GEL [Suspect]
     Active Substance: DICLOFENAC
     Indication: JOINT STIFFNESS
     Dosage: ?          QUANTITY:100 GRAM;?
     Route: 062
     Dates: start: 20200501, end: 20200814
  3. SERTRALINE [Concomitant]
     Active Substance: SERTRALINE HYDROCHLORIDE
  4. PANTOPRAZOLE [Concomitant]
     Active Substance: PANTOPRAZOLE
  5. ATENOLOL. [Concomitant]
     Active Substance: ATENOLOL
  6. LEVCETIRAZINE [Concomitant]
  7. VITAMIN B12 [Concomitant]
     Active Substance: CYANOCOBALAMIN
  8. CALCIUM POLYCARBOPHIL. [Concomitant]
     Active Substance: CALCIUM POLYCARBOPHIL
  9. FLUTICASONE. [Concomitant]
     Active Substance: FLUTICASONE
  10. DICLOFENAC 1% GEL [Suspect]
     Active Substance: DICLOFENAC
     Indication: ARTHRALGIA
     Dosage: ?          QUANTITY:100 GRAM;?
     Route: 062
     Dates: start: 20200501, end: 20200814
  11. AMLODIPINE [Concomitant]
     Active Substance: AMLODIPINE BESYLATE
  12. LISINOPRIL. [Concomitant]
     Active Substance: LISINOPRIL

REACTIONS (1)
  - Application site rash [None]

NARRATIVE: CASE EVENT DATE: 20200501
